FAERS Safety Report 7445575-3 (Version None)
Quarter: 2011Q2

REPORT INFORMATION
  Report Type: 
  Country: None (occurrence: None)
  Receive Date: 20110429
  Receipt Date: 20110421
  Transmission Date: 20111010
  Serious: Yes (Congenital Anomaly, Other)
  Sender: FDA-Public Use
  Company Number: US-PFIZER INC-2011089761

PATIENT
  Sex: Female

DRUGS (5)
  1. ZOLOFT [Suspect]
     Dosage: 25 MG, 1X/DAY EVERY MORNING
     Route: 064
  2. CALCIUM CARBONATE/COLECALCIFEROL [Concomitant]
     Dosage: 200 MG, 1X/DAY
     Route: 064
  3. ZOLOFT [Suspect]
     Dosage: 100 MG, 1X/DAY, EVERY MORNING
     Route: 064
  4. ZOLOFT [Suspect]
     Dosage: 50 MG, 1X/DAY, EVERY MORNING
     Route: 064
  5. PRENATAL VITAMINS [Concomitant]
     Dosage: UNK, 1X/DAY
     Route: 064

REACTIONS (2)
  - FALLOT'S TETRALOGY [None]
  - DRUG EXPOSURE DURING PREGNANCY [None]
